FAERS Safety Report 23274223 (Version 1)
Quarter: 2023Q4

REPORT INFORMATION
  Report Type: Spontaneous
  Country: US (occurrence: US)
  Receive Date: 20231208
  Receipt Date: 20231208
  Transmission Date: 20240110
  Serious: Yes (Other)
  Sender: FDA-Public Use
  Company Number: US-BRISTOL-MYERS SQUIBB COMPANY-2023-177490

PATIENT
  Age: 73 Year
  Sex: Female

DRUGS (1)
  1. REVLIMID [Suspect]
     Active Substance: LENALIDOMIDE
     Indication: Plasma cell myeloma recurrent
     Dosage: FREQUENCY: DAILY FOR 21 DAYS THEN 7 DAYS OFF
     Route: 048
     Dates: start: 20181203

REACTIONS (2)
  - Bronchitis [Recovering/Resolving]
  - Wrist fracture [Unknown]

NARRATIVE: CASE EVENT DATE: 20231101
